FAERS Safety Report 5412165-3 (Version None)
Quarter: 2007Q3

REPORT INFORMATION
  Report Type: 
  Country: None (occurrence: None)
  Receive Date: 20070713
  Receipt Date: 20070503
  Transmission Date: 20080115
  Serious: No
  Sender: FDA-Public Use
  Company Number: 2007SP001831

PATIENT
  Sex: Female

DRUGS (5)
  1. LUNESTA [Suspect]
     Dosage: 2 MG; ORAL, 3 MG; ORAL, 4 MG; ORAL
     Route: 048
     Dates: start: 20070101, end: 20070101
  2. LUNESTA [Suspect]
     Dosage: 2 MG; ORAL, 3 MG; ORAL, 4 MG; ORAL
     Route: 048
     Dates: start: 20070101, end: 20070101
  3. LUNESTA [Suspect]
     Dosage: 2 MG; ORAL, 3 MG; ORAL, 4 MG; ORAL
     Route: 048
     Dates: start: 20070101
  4. CYBALTA [Concomitant]
  5. ALPRAZOLAM [Concomitant]

REACTIONS (1)
  - INSOMNIA [None]
